FAERS Safety Report 15776276 (Version 1)
Quarter: 2018Q4

REPORT INFORMATION
  Report Type: Spontaneous
  Country: US (occurrence: US)
  Receive Date: 20181231
  Receipt Date: 20181231
  Transmission Date: 20190205
  Serious: Yes (Hospitalization, Other)
  Sender: FDA-Public Use
  Company Number: US-AMGEN-USASP2018185494

PATIENT
  Age: 71 Year
  Sex: Male

DRUGS (6)
  1. GEMFIBROZIL. [Concomitant]
     Active Substance: GEMFIBROZIL
  2. XGEVA [Suspect]
     Active Substance: DENOSUMAB
     Indication: PROPHYLAXIS
     Dosage: UNK UNK, Q4WK
     Route: 065
  3. AMLODIPINE [Concomitant]
     Active Substance: AMLODIPINE BESYLATE
     Dosage: UNK
  4. METOPROLOL SUCCINATE. [Concomitant]
     Active Substance: METOPROLOL SUCCINATE
  5. DOCETAXEL. [Concomitant]
     Active Substance: DOCETAXEL
     Indication: PROSTATE CANCER METASTATIC
  6. FUROSEMIDE. [Concomitant]
     Active Substance: FUROSEMIDE

REACTIONS (9)
  - Vitamin D decreased [Unknown]
  - Electrocardiogram QT prolonged [Unknown]
  - Hypophosphataemia [Unknown]
  - Fatigue [Unknown]
  - Oedema peripheral [Unknown]
  - Febrile neutropenia [Unknown]
  - Blood parathyroid hormone increased [Unknown]
  - Enterococcal bacteraemia [Recovering/Resolving]
  - Hypocalcaemia [Recovered/Resolved]
